FAERS Safety Report 23358727 (Version 1)
Quarter: 2024Q1

REPORT INFORMATION
  Report Type: Spontaneous
  Country: US (occurrence: None)
  Receive Date: 20240101
  Receipt Date: 20240101
  Transmission Date: 20240409
  Serious: No
  Sender: FDA-Public Use
  Company Number: None

PATIENT

DRUGS (1)
  1. BRIDION [Suspect]
     Active Substance: SUGAMMADEX

REACTIONS (9)
  - Headache [None]
  - Neck pain [None]
  - Hypoaesthesia [None]
  - Cerebral haemorrhage [None]
  - Wrong product administered [None]
  - Hormone level abnormal [None]
  - Product communication issue [None]
  - Paraesthesia [None]
  - Endometrial cancer [None]

NARRATIVE: CASE EVENT DATE: 20161228
